FAERS Safety Report 10045429 (Version 2)
Quarter: 2014Q2

REPORT INFORMATION
  Report Type: Spontaneous
  Country: DE (occurrence: DE)
  Receive Date: 20140328
  Receipt Date: 20140522
  Transmission Date: 20141212
  Serious: Yes (Other)
  Sender: FDA-Public Use
  Company Number: DE-TEVA-470008GER

PATIENT
  Age: 69 Year
  Sex: Female
  Weight: 67 kg

DRUGS (1)
  1. DOXEPIN-RATIOPHARM 100 MG FILMTABLETTEN [Suspect]
     Route: 048
     Dates: start: 201402, end: 201403

REACTIONS (3)
  - Angina pectoris [Recovered/Resolved]
  - Dizziness [Recovered/Resolved]
  - Somnolence [Recovered/Resolved]
